FAERS Safety Report 25645186 (Version 1)
Quarter: 2025Q3

REPORT INFORMATION
  Report Type: Spontaneous
  Country: US (occurrence: None)
  Receive Date: 20250804
  Receipt Date: 20250804
  Transmission Date: 20251021
  Serious: Yes (Disabling)
  Sender: FDA-CTU
  Company Number: None

PATIENT
  Age: 26 Year
  Sex: Male
  Weight: 90 kg

DRUGS (5)
  1. DUPIXENT [Suspect]
     Active Substance: DUPILUMAB
     Indication: Eczema
     Dates: start: 20250611, end: 20250719
  2. Garden of Life vitamin code [Concomitant]
  3. HERBALS\TURMERIC [Concomitant]
     Active Substance: HERBALS\TURMERIC
  4. OMEGA-3 ACIDS [Concomitant]
     Active Substance: OMEGA-3 FATTY ACIDS
  5. CAROTENOIDS [Concomitant]
     Active Substance: CAROTENOIDS

REACTIONS (8)
  - Erythema [None]
  - Swelling face [None]
  - Swelling of eyelid [None]
  - Swelling [None]
  - Rash macular [None]
  - Eye discharge [None]
  - Ocular hyperaemia [None]
  - Vision blurred [None]

NARRATIVE: CASE EVENT DATE: 20250719
